FAERS Safety Report 26121007 (Version 1)
Quarter: 2025Q4

REPORT INFORMATION
  Report Type: Spontaneous
  Country: US (occurrence: None)
  Receive Date: 20251203
  Receipt Date: 20251203
  Transmission Date: 20260117
  Serious: Yes (Death)
  Sender: FDA-CTU
  Company Number: None

PATIENT
  Age: 65 Year

DRUGS (21)
  1. LOKELMA [Suspect]
     Active Substance: SODIUM ZIRCONIUM CYCLOSILICATE
     Indication: Hyperkalaemia
     Dosage: FREQUENCY : TWICE A WEEK;?
     Route: 048
     Dates: start: 20250924, end: 20251117
  2. LOSARTAN [Concomitant]
     Active Substance: LOSARTAN
  3. MAG-OX 400MG TABLETS [Concomitant]
  4. METFORMIN HYDROCHLORIDE [Concomitant]
     Active Substance: METFORMIN HYDROCHLORIDE
  5. MULTIVITAMIN ADULT 50+ TABLETS [Concomitant]
  6. PREPARATION H 1% CREAM 26GM [Concomitant]
  7. SPIRONOLACTONE [Concomitant]
     Active Substance: SPIRONOLACTONE
  8. TORSEMIDE 20MG TABLETS [Concomitant]
  9. TRAZODONE [Concomitant]
     Active Substance: TRAZODONE HYDROCHLORIDE
  10. VENTOLIN HFA INH W/DOS CTR 200PUFFS [Concomitant]
  11. VITAMIN B12 2000MCG ER TABLETS [Concomitant]
  12. ASPIRIN [Concomitant]
     Active Substance: ASPIRIN
  13. AMLODIPINE BESYLATE [Concomitant]
     Active Substance: AMLODIPINE BESYLATE
  14. Anusol 51 %, suppository [Concomitant]
  15. GABAPENTIN [Concomitant]
     Active Substance: GABAPENTIN
  16. INSULIN LISPRO [Concomitant]
     Active Substance: INSULIN LISPRO
  17. Keytruda 100 mg [Concomitant]
  18. LANTUS SOLOSTAR [Concomitant]
     Active Substance: INSULIN GLARGINE
  19. Liptor 80 mg [Concomitant]
  20. Loperamide 1 mg [Concomitant]
  21. Lopressor 50 mg [Concomitant]

REACTIONS (1)
  - Death [None]

NARRATIVE: CASE EVENT DATE: 20251117
